FAERS Safety Report 7606752-1 (Version None)
Quarter: 2011Q3

REPORT INFORMATION
  Report Type: 
  Country: None (occurrence: None)
  Receive Date: 20110713
  Receipt Date: 20110629
  Transmission Date: 20111222
  Serious: Yes (Other)
  Sender: FDA-Public Use
  Company Number: JP-ROCHE-788527

PATIENT
  Age: 34 Year
  Sex: Female
  Weight: 62 kg

DRUGS (9)
  1. BROTIZOLAM [Suspect]
     Indication: SCHIZOPHRENIA
     Dosage: FORM: PERORAL AGENT
     Route: 048
  2. BROTIZOLAM [Suspect]
     Dosage: FORM: PERORAL AGENT
     Route: 048
  3. ESTAZOLAM [Suspect]
     Indication: SCHIZOPHRENIA
     Dosage: FORM: PERORAL AGENT
     Route: 048
  4. DIAZEPAM [Suspect]
     Indication: SCHIZOPHRENIA
     Route: 048
  5. ROHYPNOL [Suspect]
     Indication: SCHIZOPHRENIA
     Route: 048
  6. ETIZOLAM [Suspect]
     Indication: SCHIZOPHRENIA
     Dosage: FORM: PERORAL AGENT
     Route: 048
  7. RILMAZAFONE HYDROCHLORIDE [Suspect]
     Indication: SCHIZOPHRENIA
     Dosage: FORM: PERORAL AGENT
     Route: 048
  8. NITRAZEPAM [Suspect]
     Indication: SCHIZOPHRENIA
     Dosage: FORM: PERORAL AGENT
     Route: 048
  9. FLUPHENAZINE [Suspect]
     Indication: SCHIZOPHRENIA
     Dosage: FORM: PERORAL AGENT
     Route: 048

REACTIONS (5)
  - SUICIDE ATTEMPT [None]
  - TREMOR [None]
  - THIRST [None]
  - CONSTIPATION [None]
  - DYSARTHRIA [None]
